FAERS Safety Report 11332497 (Version 1)
Quarter: 2015Q3

REPORT INFORMATION
  Report Type: Spontaneous
  Country: US (occurrence: US)
  Receive Date: 20150803
  Receipt Date: 20150803
  Transmission Date: 20151125
  Serious: Yes (Other)
  Sender: FDA-Public Use
  Company Number: US-ELI_LILLY_AND_COMPANY-US200810003592

PATIENT
  Age: 30 Year
  Sex: Female
  Weight: 104.31 kg

DRUGS (1)
  1. ZYPREXA [Suspect]
     Active Substance: OLANZAPINE
     Dates: start: 2003

REACTIONS (13)
  - Breast enlargement [Unknown]
  - Fat tissue increased [Unknown]
  - Fatigue [Unknown]
  - Abnormal behaviour [Unknown]
  - Feeling abnormal [Unknown]
  - Systemic lupus erythematosus [Unknown]
  - Amnesia [Unknown]
  - Hormone level abnormal [Unknown]
  - Weight increased [Unknown]
  - Mental disorder [Unknown]
  - Hordeolum [Unknown]
  - Anxiety [Unknown]
  - Skin wrinkling [Unknown]

NARRATIVE: CASE EVENT DATE: 2003
